FAERS Safety Report 17219182 (Version 2)
Quarter: 2020Q1

REPORT INFORMATION
  Report Type: Spontaneous
  Country: US (occurrence: US)
  Receive Date: 20191231
  Receipt Date: 20200121
  Transmission Date: 20200409
  Serious: Yes (Other)
  Sender: FDA-Public Use
  Company Number: US-PIRAMAL ENTERPRISES LIMITED-2019-PEL-000491

PATIENT

DRUGS (1)
  1. GABLOFEN [Suspect]
     Active Substance: BACLOFEN
     Indication: MUSCLE SPASTICITY
     Dosage: 200 MICROGRAM PER DAY
     Route: 037

REACTIONS (2)
  - Postoperative wound infection [Recovering/Resolving]
  - Incision site erosion [Recovering/Resolving]

NARRATIVE: CASE EVENT DATE: 20191205
